FAERS Safety Report 7769105-1 (Version None)
Quarter: 2011Q3

REPORT INFORMATION
  Report Type: 
  Country: None (occurrence: None)
  Receive Date: 20110922
  Receipt Date: 20100916
  Transmission Date: 20111222
  Serious: No
  Sender: FDA-Public Use
  Company Number: US-ASTRAZENECA-2010SE43663

PATIENT
  Age: 41 Year
  Sex: Female

DRUGS (4)
  1. SEROQUEL XR [Suspect]
     Route: 048
  2. SERTRALINE HYDROCHLORIDE [Concomitant]
  3. VICODIN [Concomitant]
  4. FLEXERIL [Concomitant]

REACTIONS (1)
  - SEROTONIN SYNDROME [None]
